FAERS Safety Report 20704377 (Version 2)
Quarter: 2022Q2

REPORT INFORMATION
  Report Type: Spontaneous
  Country: US (occurrence: US)
  Receive Date: 20220413
  Receipt Date: 20220628
  Transmission Date: 20220721
  Serious: Yes (Other)
  Sender: FDA-Public Use
  Company Number: US-REGENERON PHARMACEUTICALS, INC.-2022-49027

PATIENT
  Sex: Male

DRUGS (17)
  1. EYLEA [Suspect]
     Active Substance: AFLIBERCEPT
     Indication: Neovascular age-related macular degeneration
     Dosage: 2 MG, EVERY 2 X 7 WEEKS APART IN LEFT EYE, FORMULATION INJECTION
  2. EYLEA [Suspect]
     Active Substance: AFLIBERCEPT
     Indication: Choroidal neovascularisation
     Dosage: 2 MG, EVERY 2 X 7 WEEKS APART IN LEFT EYE, INJECTION
     Dates: start: 20220120, end: 20220120
  3. EYLEA [Suspect]
     Active Substance: AFLIBERCEPT
     Dosage: 2 MG, EVERY 2 X 7 WEEKS APART IN LEFT EYE, INJECTION, 21ST DOSE
     Dates: start: 20220308, end: 20220308
  4. MINERALS\VITAMINS [Concomitant]
     Active Substance: MINERALS\VITAMINS
     Indication: Product used for unknown indication
     Dosage: 1 DF BID (1 TABLET BID BY MOUTH)
     Route: 048
  5. WELLBUTRIN [Concomitant]
     Active Substance: BUPROPION HYDROCHLORIDE
     Indication: Product used for unknown indication
     Dosage: 1 DF QD (ONE 450 MG TABLET QDAY BY MOUTH)
     Route: 048
  6. CRESTOR [Concomitant]
     Active Substance: ROSUVASTATIN CALCIUM
     Indication: Product used for unknown indication
     Dosage: 1 DF QD (ONE 5 MG TABLET QDAY BY MOUTH)
     Route: 048
  7. SINGULAIR [Concomitant]
     Active Substance: MONTELUKAST SODIUM
     Indication: Product used for unknown indication
     Dosage: 1 DF QD (ONE 10 MG  TABLET QDAY BY MOUTH)
     Route: 048
  8. METOPROLOL SUCCINATE W/METOPROLOL TARTRATE [Concomitant]
     Indication: Product used for unknown indication
     Dosage: 0.5 DF, QD;  1/2 TABLET QDAY BY MOUTH
     Route: 048
  9. LISINOPRIL [Concomitant]
     Active Substance: LISINOPRIL
     Indication: Product used for unknown indication
     Dosage: 1 DF QD (5 MG ORAL TABLET 1 TABLET QDAY BY MOUTH)
     Route: 048
  10. PHENYLEPHRINE W/TROPICAMIDE [Concomitant]
     Indication: Pupil dilation procedure
     Dosage: UNK
     Dates: start: 20220308
  11. BETADINE                           /00080001/ [Concomitant]
     Indication: Product used for unknown indication
     Dosage: UNK
     Dates: start: 20220308
  12. BETADINE                           /00080001/ [Concomitant]
     Indication: Product used for unknown indication
     Dosage: UNK (FORMULATION: SCRUB)
     Dates: start: 20220308
  13. ALCAINE [Concomitant]
     Active Substance: PROPARACAINE HYDROCHLORIDE
     Indication: Application site anaesthesia
     Dosage: UNK
     Route: 061
     Dates: start: 20220308
  14. LIDOCAINE                          /00033402/ [Concomitant]
     Indication: Application site anaesthesia
     Dosage: UNK
     Route: 061
     Dates: start: 20220308
  15. DEXAMETHASONE [Concomitant]
     Active Substance: DEXAMETHASONE
     Indication: Vitreous floaters
     Dosage: UNK (LEFT EYE)
     Route: 031
     Dates: start: 20220319
  16. TETRACAINE [Concomitant]
     Active Substance: TETRACAINE
     Indication: Product used for unknown indication
     Dosage: UNK (TOPICAL ADINISTERED TO EYE)
     Route: 061
     Dates: start: 20220319
  17. AKTEN [Concomitant]
     Active Substance: LIDOCAINE HYDROCHLORIDE
     Indication: Product used for unknown indication
     Dosage: UNK (TOPICAL ADINISTERED TO EYE)
     Dates: start: 20220319

REACTIONS (8)
  - Blindness transient [Recovered/Resolved]
  - Vitreous detachment [Unknown]
  - Cataract [Unknown]
  - Vitritis [Unknown]
  - Condition aggravated [Unknown]
  - Eye inflammation [Unknown]
  - Vision blurred [Not Recovered/Not Resolved]
  - Iritis [Unknown]

NARRATIVE: CASE EVENT DATE: 20220101
